FAERS Safety Report 5664659-3 (Version None)
Quarter: 2008Q1

REPORT INFORMATION
  Report Type: 
  Country: None (occurrence: None)
  Receive Date: 20080314
  Receipt Date: 20080228
  Transmission Date: 20080703
  Serious: Yes (Hospitalization, Other)
  Sender: FDA-Public Use
  Company Number: ES-ROCHE-550238

PATIENT
  Age: 61 Year
  Sex: Female

DRUGS (7)
  1. NAPROXEN [Suspect]
     Indication: ANTIINFLAMMATORY THERAPY
     Dosage: INDICATION: ANTI INFLAMMATORY FOR SEVERE PAIN IN RIGHT KNEE.
     Route: 065
  2. METFORMIN [Suspect]
     Indication: DIABETES MELLITUS
     Route: 065
  3. GLIBENCLAMIDE [Suspect]
     Indication: DIABETES MELLITUS
     Route: 065
  4. CAPTOPRIL [Concomitant]
  5. LEVOTHYROXINE SODIUM [Concomitant]
  6. DICLOFENAC [Concomitant]
     Indication: ANTIINFLAMMATORY THERAPY
     Dosage: INDICATION: ANTI INFLAMMATORY FOR SEVERE PAIN IN RIGHT KNEE.
  7. ROFECOXIB [Concomitant]
     Indication: ANTIINFLAMMATORY THERAPY
     Dosage: INDICATION: ANTI INFLAMMATORY FOR SEVERE PAIN IN RIGHT KNEE.

REACTIONS (6)
  - DIARRHOEA [None]
  - METABOLIC ACIDOSIS [None]
  - MUCOSAL DRYNESS [None]
  - RENAL FAILURE ACUTE [None]
  - SOMNOLENCE [None]
  - VOMITING [None]
